FAERS Safety Report 4648300-4 (Version None)
Quarter: 2005Q2

REPORT INFORMATION
  Report Type: 
  Country: None (occurrence: None)
  Receive Date: 20050331
  Receipt Date: 20041228
  Transmission Date: 20051028
  Serious: No
  Sender: FDA-Public Use
  Company Number: 04P-163-0284822-00

PATIENT
  Age: 54 Year
  Sex: Female

DRUGS (4)
  1. HUMIRA [Suspect]
     Indication: PSORIATIC ARTHROPATHY
     Dosage: 40 MG, 1 IN 2 WK, SUBCUTANEOUS;  40 MG, 1 IN 10 D, SUBCUTANEOUS;  40 MG, 1 IN 7 D, SUBCUTANEOUS
     Route: 058
     Dates: start: 20040101, end: 20040101
  2. HUMIRA [Suspect]
     Indication: PSORIATIC ARTHROPATHY
     Dosage: 40 MG, 1 IN 2 WK, SUBCUTANEOUS;  40 MG, 1 IN 10 D, SUBCUTANEOUS;  40 MG, 1 IN 7 D, SUBCUTANEOUS
     Route: 058
     Dates: start: 20040217, end: 20040101
  3. HUMIRA [Suspect]
     Indication: PSORIATIC ARTHROPATHY
     Dosage: 40 MG, 1 IN 2 WK, SUBCUTANEOUS;  40 MG, 1 IN 10 D, SUBCUTANEOUS;  40 MG, 1 IN 7 D, SUBCUTANEOUS
     Route: 058
     Dates: start: 20040101
  4. ETODOLAC [Concomitant]

REACTIONS (2)
  - DRUG INEFFECTIVE [None]
  - INJECTION SITE PAIN [None]
